FAERS Safety Report 13903924 (Version 3)
Quarter: 2017Q3

REPORT INFORMATION
  Report Type: Report from Study
  Country: IN (occurrence: IN)
  Receive Date: 20170824
  Receipt Date: 20170925
  Transmission Date: 20171127
  Serious: Yes (Other)
  Sender: FDA-Public Use
  Company Number: PHHY2017IN100471

PATIENT
  Age: 30 Year
  Sex: Male
  Weight: 68 kg

DRUGS (2)
  1. AFINITOR [Suspect]
     Active Substance: EVEROLIMUS
     Indication: METASTATIC RENAL CELL CARCINOMA
     Dosage: 10 MG, QD
     Route: 048
     Dates: start: 20170623, end: 201708
  2. AFINITOR [Suspect]
     Active Substance: EVEROLIMUS
     Dosage: 10 MG, QD
     Route: 048
     Dates: start: 20170907, end: 20170911

REACTIONS (10)
  - Lethargy [Recovered/Resolved]
  - Hypoglycaemia [Not Recovered/Not Resolved]
  - Asthenia [Recovered/Resolved]
  - Hypertension [Recovered/Resolved]
  - Cough [Not Recovered/Not Resolved]
  - Constipation [Recovered/Resolved]
  - Swelling face [Recovered/Resolved]
  - Palmar-plantar erythrodysaesthesia syndrome [Recovered/Resolved]
  - Asthenia [Not Recovered/Not Resolved]
  - Dyspnoea [Not Recovered/Not Resolved]

NARRATIVE: CASE EVENT DATE: 20170623
